FAERS Safety Report 10963146 (Version 1)
Quarter: 2015Q1

REPORT INFORMATION
  Report Type: Report from Study
  Country: MX (occurrence: MX)
  Receive Date: 20150327
  Receipt Date: 20150327
  Transmission Date: 20150721
  Serious: Yes (Other)
  Sender: FDA-Public Use
  Company Number: PHHY2014MX173590

PATIENT

DRUGS (3)
  1. SOM230 [Suspect]
     Active Substance: PASIREOTIDE
     Dosage: 40 MG, EACH 28 DAYS
     Route: 065
     Dates: end: 20140302
  2. SOM230 [Suspect]
     Active Substance: PASIREOTIDE
     Indication: ACROMEGALY
     Dosage: 40 MG, EACH 28 DAYS
     Dates: start: 20130328
  3. SOM230 [Suspect]
     Active Substance: PASIREOTIDE
     Dosage: UNK
     Route: 065

REACTIONS (2)
  - Cholelithiasis [Not Recovered/Not Resolved]
  - Hyperglycaemia [Recovered/Resolved]

NARRATIVE: CASE EVENT DATE: 20130427
